FAERS Safety Report 10301357 (Version 1)
Quarter: 2014Q3

REPORT INFORMATION
  Report Type: Spontaneous
  Country: FR (occurrence: None)
  Receive Date: 20140708
  Receipt Date: 20140708
  Transmission Date: 20150326
  Serious: Yes (Life-Threatening)
  Sender: FDA-Public Use
  Company Number: FR-016027

PATIENT
  Age: 38 Year
  Sex: Female

DRUGS (2)
  1. PROPESS [Suspect]
     Active Substance: DINOPROSTONE
     Indication: INDUCTION OF CERVIX RIPENING
     Route: 067
     Dates: start: 20140502, end: 20140503
  2. PROSTINE E2 [Suspect]
     Active Substance: DINOPROSTONE
     Indication: INDUCTION OF CERVIX RIPENING
     Route: 067
     Dates: start: 20140503, end: 20140503

REACTIONS (3)
  - Hyperkinesia [None]
  - Uterine hypertonus [None]
  - Drug ineffective [None]

NARRATIVE: CASE EVENT DATE: 20140503
